FAERS Safety Report 19939147 (Version 1)
Quarter: 2021Q4

REPORT INFORMATION
  Report Type: Spontaneous
  Country: NL (occurrence: NL)
  Receive Date: 20211011
  Receipt Date: 20211011
  Transmission Date: 20220303
  Serious: Yes (Death, Other)
  Sender: FDA-Public Use
  Company Number: NL-ABBVIE-21K-114-4113395-00

PATIENT
  Age: 64 Year
  Sex: Male

DRUGS (1)
  1. VALPROIC ACID [Suspect]
     Active Substance: VALPROIC ACID
     Indication: Epstein-Barr virus infection
     Route: 048

REACTIONS (2)
  - Cerebrovascular accident [Fatal]
  - Therapeutic product effect incomplete [Unknown]
